FAERS Safety Report 15386524 (Version 1)
Quarter: 2018Q3

REPORT INFORMATION
  Report Type: Report from Study
  Country: LB (occurrence: LB)
  Receive Date: 20180914
  Receipt Date: 20180914
  Transmission Date: 20181010
  Serious: Yes (Death, Other)
  Sender: FDA-Public Use
  Company Number: LB-ASTELLAS-2018US040659

PATIENT
  Age: 70 Year
  Sex: Male

DRUGS (1)
  1. AMPHOTERICIN B, LIPOSOME [Suspect]
     Active Substance: AMPHOTERICIN B
     Indication: MUCORMYCOSIS
     Dosage: AVERAGE DOSE 7 MG/KG/DAY (RANGE 5?10)
     Route: 065

REACTIONS (1)
  - Drug ineffective [Fatal]
